FAERS Safety Report 5797347-3 (Version None)
Quarter: 2008Q3

REPORT INFORMATION
  Report Type: 
  Country: None (occurrence: None)
  Receive Date: 20080701
  Receipt Date: 20080616
  Transmission Date: 20090109
  Serious: No
  Sender: FDA-Public Use
  Company Number: US-BOEHRINGER INGELHEIM GMBH, GERMANY-2008-BP-09462BP

PATIENT
  Sex: Female

DRUGS (3)
  1. MICARDIS [Suspect]
     Indication: HYPERTENSION
     Route: 048
     Dates: start: 20030101
  2. XANAX [Concomitant]
  3. HYDROCODONE [Concomitant]
     Indication: ARTHRITIS

REACTIONS (3)
  - DIARRHOEA [None]
  - DYSGEUSIA [None]
  - THROAT IRRITATION [None]
